FAERS Safety Report 21440470 (Version 1)
Quarter: 2022Q4

REPORT INFORMATION
  Report Type: Spontaneous
  Country: US (occurrence: US)
  Receive Date: 20221011
  Receipt Date: 20221011
  Transmission Date: 20230112
  Serious: Yes (Hospitalization)
  Sender: FDA-Public Use
  Company Number: US-AMNEAL PHARMACEUTICALS-2022-AMRX-01649

PATIENT
  Sex: Male
  Weight: 81.692 kg

DRUGS (1)
  1. BACLOFEN [Suspect]
     Active Substance: BACLOFEN
     Indication: Product used for unknown indication
     Dosage: 139.883 MCG/DAY
     Route: 037

REACTIONS (5)
  - Paraesthesia [Recovered/Resolved]
  - Muscular weakness [Recovered/Resolved]
  - Drug withdrawal syndrome [Recovered/Resolved]
  - Urinary tract infection [Recovered/Resolved]
  - Suicidal ideation [Recovered/Resolved]
